FAERS Safety Report 25790760 (Version 2)
Quarter: 2025Q3

REPORT INFORMATION
  Report Type: Spontaneous
  Country: US (occurrence: US)
  Receive Date: 20250911
  Receipt Date: 20250912
  Transmission Date: 20251020
  Serious: No
  Sender: PFIZER
  Company Number: US-PFIZER INC-202500178001

PATIENT
  Age: 76 Year

DRUGS (1)
  1. METHOTREXATE SODIUM [Suspect]
     Active Substance: METHOTREXATE SODIUM

REACTIONS (4)
  - Tongue geographic [Unknown]
  - Glossodynia [Unknown]
  - Stomatitis [Unknown]
  - Tongue disorder [Unknown]
